FAERS Safety Report 16046285 (Version 1)
Quarter: 2019Q1

REPORT INFORMATION
  Report Type: Spontaneous
  Country: US (occurrence: US)
  Receive Date: 20190207
  Receipt Date: 20190207
  Transmission Date: 20190418
  Serious: Yes (Hospitalization)
  Sender: FDA-Public Use
  Company Number: None

PATIENT
  Age: 24 Year
  Sex: Male

DRUGS (27)
  1. FLUTICASONE. [Concomitant]
     Active Substance: FLUTICASONE
  2. SUBOXONE [Concomitant]
     Active Substance: BUPRENORPHINE HYDROCHLORIDE\NALOXONE HYDROCHLORIDE
  3. ONDANSETRON [Concomitant]
     Active Substance: ONDANSETRON
  4. VITAMIN D [Concomitant]
     Active Substance: CHOLECALCIFEROL
  5. CREON [Concomitant]
     Active Substance: PANCRELIPASE AMYLASE\PANCRELIPASE LIPASE\PANCRELIPASE PROTEASE
  6. HYOSCYAMINE. [Concomitant]
     Active Substance: HYOSCYAMINE
  7. PANTOPRAZOLE [Concomitant]
     Active Substance: PANTOPRAZOLE
  8. AZITHROMYCIN ANHYDROUS. [Concomitant]
     Active Substance: AZITHROMYCIN ANHYDROUS
  9. SODIUM CHLORIDE. [Concomitant]
     Active Substance: SODIUM CHLORIDE
  10. POLYETH GLYC [Concomitant]
     Active Substance: POLYETHYLENE GLYCOLS
  11. LORATADINE. [Concomitant]
     Active Substance: LORATADINE
  12. FUROSEMIDE. [Concomitant]
     Active Substance: FUROSEMIDE
  13. COMPLETE FORM [Concomitant]
  14. TOBI PODHALER [Concomitant]
     Active Substance: TOBRAMYCIN
  15. NITRO-BID [Concomitant]
     Active Substance: NITROGLYCERIN
  16. OLANZAPINE. [Concomitant]
     Active Substance: OLANZAPINE
  17. PROAIR HFA [Concomitant]
     Active Substance: ALBUTEROL SULFATE
  18. PULMOZYME [Concomitant]
     Active Substance: DORNASE ALFA
  19. DIVALPROEX [Concomitant]
     Active Substance: DIVALPROEX SODIUM
  20. A-HYDROCORT [Concomitant]
     Active Substance: HYDROCORTISONE SODIUM SUCCINATE
  21. BUSPIRONE [Concomitant]
     Active Substance: BUSPIRONE HYDROCHLORIDE
  22. TOBRAMYCIN. [Concomitant]
     Active Substance: TOBRAMYCIN
  23. GAS RELIEF [Concomitant]
     Active Substance: DIMETHICONE
  24. URSODIOL 250MG TAB [Suspect]
     Active Substance: URSODIOL
     Indication: CYSTIC FIBROSIS
     Route: 048
     Dates: start: 20131018
  25. INSURE PLUS CHOCOLATE [Concomitant]
  26. OLANZAPINE. [Concomitant]
     Active Substance: OLANZAPINE
  27. QVAR [Concomitant]
     Active Substance: BECLOMETHASONE DIPROPIONATE

REACTIONS (2)
  - Cystic fibrosis [None]
  - Disease complication [None]

NARRATIVE: CASE EVENT DATE: 201902
